FAERS Safety Report 25675669 (Version 1)
Quarter: 2025Q3

REPORT INFORMATION
  Report Type: Spontaneous
  Country: GB (occurrence: None)
  Receive Date: 20250813
  Receipt Date: 20250813
  Transmission Date: 20251020
  Serious: Yes (Other)
  Sender: ORION
  Company Number: None

PATIENT
  Age: 49 Year
  Sex: Female

DRUGS (9)
  1. METHOTREXATE [Suspect]
     Active Substance: METHOTREXATE
     Indication: Arthritis
     Dosage: HELD UNTIL PANCREATITIS RESOLVES
     Dates: start: 20130101, end: 20250731
  2. COCODAMOL [Concomitant]
     Active Substance: ACETAMINOPHEN\CODEINE PHOSPHATE
  3. FOLIC ACID [Concomitant]
     Active Substance: FOLIC ACID
     Dosage: ON HOLD WHILE METHOTREXATE HELD
  4. CITALOPRAM [Concomitant]
     Active Substance: CITALOPRAM
     Dates: start: 20250805
  5. IBUPROFEN [Concomitant]
     Active Substance: IBUPROFEN
     Dosage: AS NEEDED
  6. AMITRIPTYLINE [Concomitant]
     Active Substance: AMITRIPTYLINE
  7. SYMBICORT [Concomitant]
     Active Substance: BUDESONIDE\FORMOTEROL FUMARATE DIHYDRATE
     Dosage: 1 PUFF
  8. MOMETASONE [Concomitant]
     Active Substance: MOMETASONE
     Dosage: STRENGTH: 50MICROGRAMS/DOSE, TWO SPRAYS BOTH NOSTRILS
  9. BUTYLSCOPOLAMINE BROMIDE [Concomitant]
     Active Substance: BUTYLSCOPOLAMINE BROMIDE
     Dosage: AS NECESSARY

REACTIONS (2)
  - Pancreatitis acute [Recovered/Resolved with Sequelae]
  - Weight decreased [Unknown]

NARRATIVE: CASE EVENT DATE: 20250804
